FAERS Safety Report 8093022-3 (Version None)
Quarter: 2012Q1

REPORT INFORMATION
  Report Type: 
  Country: None (occurrence: None)
  Receive Date: 20120128
  Receipt Date: 20111024
  Transmission Date: 20120608
  Serious: No
  Sender: FDA-Public Use
  Company Number: US-ABBOTT-10P-163-0670768-00

PATIENT
  Sex: Male
  Weight: 98.972 kg

DRUGS (12)
  1. HUMIRA [Suspect]
     Indication: RHEUMATOID ARTHRITIS
     Route: 058
     Dates: start: 20040101, end: 20090101
  2. HUMIRA [Suspect]
     Indication: RHEUMATOID ARTHRITIS
     Route: 058
     Dates: start: 20090101, end: 20110701
  3. HUMIRA [Suspect]
     Route: 058
     Dates: start: 20111001
  4. METHOTREXATE [Concomitant]
     Indication: RHEUMATOID ARTHRITIS
  5. LISINOPRIL [Concomitant]
     Indication: HYPERTENSION
  6. FISH OIL [Concomitant]
     Indication: SUPPLEMENTATION THERAPY
  7. FLAXSEED OIL [Concomitant]
     Indication: MEDICAL DIET
  8. LOVASTATIN [Concomitant]
     Indication: BLOOD CHOLESTEROL INCREASED
  9. HUMIRA [Suspect]
     Route: 058
     Dates: start: 20110701, end: 20111001
  10. LORAZEPAM [Concomitant]
     Indication: INSOMNIA
  11. GLUCOSAMINE/CHONDROITIN [Concomitant]
     Indication: SUPPLEMENTATION THERAPY
  12. LORAZEPAM [Concomitant]
     Indication: ANXIETY
     Dosage: UP TO 4-5 DAILY AS NEEDED

REACTIONS (4)
  - TREMOR [None]
  - INJECTION SITE PAIN [None]
  - PAIN [None]
  - MUSCULOSKELETAL STIFFNESS [None]
